FAERS Safety Report 11399395 (Version 2)
Quarter: 2015Q3

REPORT INFORMATION
  Report Type: Spontaneous
  Country: US (occurrence: US)
  Receive Date: 20150820
  Receipt Date: 20150918
  Transmission Date: 20151125
  Serious: Yes (Hospitalization)
  Sender: FDA-Public Use
  Company Number: US-PFIZER INC-2015266778

PATIENT
  Age: 31 Year
  Sex: Female

DRUGS (1)
  1. ADVIL CONGESTION RELIEF [Suspect]
     Active Substance: IBUPROFEN\PHENYLEPHRINE HYDROCHLORIDE
     Indication: NASOPHARYNGITIS
     Dosage: 200 MG, 2X/DAY ^(DIRECTIONS SAID EVERY 4 HOURS)^

REACTIONS (3)
  - Mobility decreased [Recovered/Resolved]
  - Gastritis [Recovered/Resolved]
  - Decreased appetite [Recovered/Resolved]
